FAERS Safety Report 16061605 (Version 1)
Quarter: 2019Q1

REPORT INFORMATION
  Report Type: Spontaneous
  Country: US (occurrence: US)
  Receive Date: 20190312
  Receipt Date: 20190312
  Transmission Date: 20190418
  Serious: No
  Sender: FDA-Public Use
  Company Number: US-PFIZER INC-2019096418

PATIENT
  Sex: Male

DRUGS (1)
  1. NEURONTIN [Suspect]
     Active Substance: GABAPENTIN
     Indication: ANXIETY
     Dosage: UNK, DAILY (BETWEEN 900 MG TO 1200 MG)

REACTIONS (2)
  - Influenza like illness [Unknown]
  - Drug effective for unapproved indication [Unknown]
